FAERS Safety Report 4556870-X (Version None)
Quarter: 2005Q1

REPORT INFORMATION
  Report Type: 
  Country: None (occurrence: None)
  Receive Date: 20050103
  Receipt Date: 20040630
  Transmission Date: 20050727
  Serious: Yes (Other)
  Sender: FDA-Public Use
  Company Number: 2004UW13548

PATIENT
  Age: 63 Year
  Sex: Female
  Weight: 79.3795 kg

DRUGS (4)
  1. CRESTOR [Suspect]
     Indication: HYPERCHOLESTEROLAEMIA
     Dosage: 10 MG PO
     Route: 048
     Dates: start: 20030101
  2. PLAVIX [Concomitant]
  3. LOPRESSOR [Concomitant]
  4. ISODIL [Concomitant]

REACTIONS (3)
  - CONSTIPATION [None]
  - FATIGUE [None]
  - INFLUENZA LIKE ILLNESS [None]
